FAERS Safety Report 16032879 (Version 2)
Quarter: 2019Q1

REPORT INFORMATION
  Report Type: Spontaneous
  Country: US (occurrence: US)
  Receive Date: 20190305
  Receipt Date: 20190311
  Transmission Date: 20190418
  Serious: Yes (Other)
  Sender: FDA-Public Use
  Company Number: US-LUPIN PHARMACEUTICALS INC.-2019-01142

PATIENT
  Sex: Male
  Weight: 89.8 kg

DRUGS (2)
  1. ATORVASTATIN [Concomitant]
     Active Substance: ATORVASTATIN
     Indication: PRODUCT USED FOR UNKNOWN INDICATION
     Dosage: UNK
     Route: 065
  2. LISINOPRIL TABLETS USP, 20MG [Suspect]
     Active Substance: LISINOPRIL
     Indication: HYPERTENSION
     Dosage: 20 MILLIGRAM, QD
     Route: 048

REACTIONS (7)
  - Internal haemorrhage [Unknown]
  - Gastritis [Unknown]
  - Abdominal distension [Unknown]
  - Intestinal haemorrhage [Recovered/Resolved]
  - Rectal haemorrhage [Unknown]
  - Gastrointestinal inflammation [Recovered/Resolved]
  - Gluten sensitivity [Recovered/Resolved]
